FAERS Safety Report 13008763 (Version 1)
Quarter: 2016Q4

REPORT INFORMATION
  Report Type: Spontaneous
  Country: US (occurrence: US)
  Receive Date: 20161208
  Receipt Date: 20161208
  Transmission Date: 20170207
  Serious: Yes (Other)
  Sender: FDA-Public Use
  Company Number: US-MALLINCKRODT-T201603788

PATIENT
  Age: 64 Year
  Sex: Male

DRUGS (2)
  1. H.P. ACTHAR [Suspect]
     Active Substance: CORTICOTROPIN
     Indication: IGA NEPHROPATHY
     Dosage: UNKNOWN
     Route: 065
     Dates: start: 20160314, end: 2016
  2. H.P. ACTHAR [Suspect]
     Active Substance: CORTICOTROPIN
     Dosage: TAPERED DOSING, UNKNOWN
     Route: 065
     Dates: start: 2016, end: 20160810

REACTIONS (9)
  - Blood glucose increased [Unknown]
  - Weight increased [Unknown]
  - Atrial fibrillation [Unknown]
  - Feeling jittery [Unknown]
  - Autoimmune disorder [Unknown]
  - Asthenia [Unknown]
  - Peripheral swelling [Unknown]
  - Tremor [Unknown]
  - Mood altered [Unknown]

NARRATIVE: CASE EVENT DATE: 2016
